FAERS Safety Report 5475053-2 (Version None)
Quarter: 2007Q4

REPORT INFORMATION
  Report Type: 
  Country: None (occurrence: None)
  Receive Date: 20071002
  Receipt Date: 20070925
  Transmission Date: 20080405
  Serious: Yes (Life-Threatening, Hospitalization, Other)
  Sender: FDA-Public Use
  Company Number: US-ELI_LILLY_AND_COMPANY-US200705006511

PATIENT
  Age: 66 Year
  Sex: Male
  Weight: 99.773 kg

DRUGS (11)
  1. BYETTA [Suspect]
     Indication: TYPE 2 DIABETES MELLITUS
     Dosage: 5 UG, 2/D
     Route: 058
     Dates: start: 20060701, end: 20060801
  2. BYETTA [Suspect]
     Dosage: 10 UG, 2/D
     Route: 058
     Dates: start: 20060801, end: 20061007
  3. BYETTA [Suspect]
     Dosage: 10 UG, 2/D
     Route: 058
     Dates: start: 20070401
  4. BYETTA [Suspect]
     Dosage: 10 UG, 2/D
     Route: 058
     Dates: start: 20070401
  5. LANTUS [Concomitant]
     Indication: TYPE 2 DIABETES MELLITUS
     Dosage: UNK, UNKNOWN
     Dates: end: 20060701
  6. LANTUS [Concomitant]
     Dosage: 40 U, EACH EVENING
     Dates: start: 20061012, end: 20061001
  7. LANTUS [Concomitant]
     Dosage: 50 U, EACH EVENING
     Dates: start: 20061001
  8. LANTUS [Concomitant]
     Dosage: 60 U, EACH EVENING
     Dates: start: 20070401
  9. AVALIDE [Concomitant]
     Indication: HYPERTENSION
     Dosage: UNK D/F, DAILY (1/D)
     Route: 048
     Dates: start: 20060101
  10. ACTOS [Concomitant]
     Dosage: 45 MG, DAILY (1/D)
     Dates: end: 20061026
  11. GLUCOPHAGE [Concomitant]
     Dosage: 1000 MG, 2/D
     Dates: end: 20061026

REACTIONS (18)
  - ACUTE MYOCARDIAL INFARCTION [None]
  - ANAEMIA [None]
  - ATRIAL FIBRILLATION [None]
  - BLOOD GLUCOSE INCREASED [None]
  - CORONARY ARTERY DISEASE [None]
  - DEPRESSION [None]
  - DIABETIC KETOACIDOSIS [None]
  - DRUG INEFFECTIVE [None]
  - HYPEROSMOLAR STATE [None]
  - HYPOTENSION [None]
  - HYPOVOLAEMIA [None]
  - ODYNOPHAGIA [None]
  - OSTEOARTHRITIS [None]
  - PANCREATITIS [None]
  - RETCHING [None]
  - SHOCK [None]
  - VOMITING [None]
  - WEIGHT DECREASED [None]
